FAERS Safety Report 8976757 (Version 1)
Quarter: 2012Q4

REPORT INFORMATION
  Report Type: 
  Country: US (occurrence: US)
  Receive Date: 20121219
  Receipt Date: 20121219
  Transmission Date: 20130627
  Serious: No
  Sender: FDA-Public Use
  Company Number: US-AMGEN-USASP2012056915

PATIENT
  Age: 62 Year
  Sex: Female
  Weight: 60.77 kg

DRUGS (3)
  1. PROLIA [Suspect]
     Indication: OSTEOPOROSIS POSTMENOPAUSAL
     Dosage: 60 mg, q6mo
     Dates: start: 20100913
  2. PRAVASTATIN [Concomitant]
     Indication: BLOOD CHOLESTEROL
     Dosage: 20 mg, UNK
     Route: 048
  3. BETAMETHASONE [Concomitant]
     Route: 061

REACTIONS (1)
  - Herpes zoster [Recovered/Resolved]
